FAERS Safety Report 8221500-2 (Version None)
Quarter: 2012Q1

REPORT INFORMATION
  Report Type: 
  Country: None (occurrence: None)
  Receive Date: 20120320
  Receipt Date: 20120316
  Transmission Date: 20120608
  Serious: Yes (Death, Other)
  Sender: FDA-Public Use
  Company Number: PHHY2012CH023461

PATIENT
  Age: 45 Year
  Sex: Male
  Weight: 69 kg

DRUGS (3)
  1. LORAZEPAM [Suspect]
     Dosage: UNK
  2. NORDAZEPAM [Suspect]
  3. OXAZEPAM [Suspect]

REACTIONS (2)
  - HAEMORRHAGE [None]
  - HYPOTHERMIA [None]
